FAERS Safety Report 4285301-2 (Version None)
Quarter: 2004Q1

REPORT INFORMATION
  Report Type: 
  Country: None (occurrence: None)
  Receive Date: 20040204
  Receipt Date: 20040129
  Transmission Date: 20041129
  Serious: Yes (Death, Other)
  Sender: FDA-Public Use
  Company Number: PHBS2004JP01478

PATIENT
  Sex: Male

DRUGS (7)
  1. RITALIN [Suspect]
     Route: 048
     Dates: start: 19990101
  2. LEXOTAN [Concomitant]
     Indication: INSOMNIA
     Dates: start: 20000101
  3. LORAZEPAM [Concomitant]
     Indication: INSOMNIA
     Dates: start: 20000101
  4. FLUMEZIN [Concomitant]
     Indication: INSOMNIA
     Dates: start: 20000101
  5. AKINETON [Concomitant]
     Indication: INSOMNIA
     Dates: start: 20000101
  6. BROVARIN [Concomitant]
     Indication: INSOMNIA
     Dates: start: 20000101
  7. ISOMYTAL [Concomitant]
     Dates: start: 20000101

REACTIONS (7)
  - COMPLETED SUICIDE [None]
  - DEPRESSION [None]
  - DRUG ABUSER [None]
  - INSOMNIA [None]
  - INTENTIONAL OVERDOSE [None]
  - OVERDOSE [None]
  - SUICIDE ATTEMPT [None]
